FAERS Safety Report 6463830-0 (Version None)
Quarter: 2009Q4

REPORT INFORMATION
  Report Type: 
  Country: None (occurrence: None)
  Receive Date: 20091201
  Receipt Date: 20091119
  Transmission Date: 20100525
  Serious: Yes (Hospitalization)
  Sender: FDA-Public Use
  Company Number: US-JNJFOC-20091106646

PATIENT
  Sex: Female
  Weight: 72.58 kg

DRUGS (1)
  1. DITROPAN XL [Suspect]
     Indication: INCONTINENCE
     Route: 048

REACTIONS (3)
  - HYPERTENSION [None]
  - OVARIAN CANCER [None]
  - UNEVALUABLE EVENT [None]
